FAERS Safety Report 6579228-0 (Version None)
Quarter: 2010Q1

REPORT INFORMATION
  Report Type: 
  Country: None (occurrence: None)
  Receive Date: 20100212
  Receipt Date: 20100203
  Transmission Date: 20100710
  Serious: Yes (Hospitalization, Other)
  Sender: FDA-Public Use
  Company Number: US-ALEXION-A201000072

PATIENT
  Sex: Male
  Weight: 137.6 kg

DRUGS (1)
  1. SOLIRIS [Suspect]
     Indication: PAROXYSMAL NOCTURNAL HAEMOGLOBINURIA
     Dosage: QW
     Route: 042
     Dates: start: 20091201, end: 20100116

REACTIONS (3)
  - BONE MARROW TRANSPLANT [None]
  - NASOPHARYNGITIS [None]
  - PANCYTOPENIA [None]
